FAERS Safety Report 10064235 (Version 3)
Quarter: 2014Q2

REPORT INFORMATION
  Report Type: Spontaneous
  Country: MY (occurrence: MY)
  Receive Date: 20140408
  Receipt Date: 20140502
  Transmission Date: 20141212
  Serious: Yes (Other)
  Sender: FDA-Public Use
  Company Number: MY-RANBAXY-2014RR-79606

PATIENT
  Age: 74 Year
  Sex: Male
  Weight: 53 kg

DRUGS (6)
  1. METFORMIN [Suspect]
     Indication: TYPE 2 DIABETES MELLITUS
     Dosage: 1 G, BID
     Route: 065
  2. GLUCOPHAGE XR [Suspect]
     Indication: TYPE 2 DIABETES MELLITUS
     Dosage: EQUIVALENT DOSE
     Route: 065
  3. GLICLAZIDE [Suspect]
     Indication: TYPE 2 DIABETES MELLITUS
     Dosage: 120 MG, BID
     Route: 065
  4. ASPIRIN [Concomitant]
     Indication: PRODUCT USED FOR UNKNOWN INDICATION
     Dosage: 150 MG, QD
     Route: 065
  5. VITAMIN B COMPLEX [Concomitant]
     Indication: PRODUCT USED FOR UNKNOWN INDICATION
     Dosage: 1 DF, QD
     Route: 065
  6. PERINDOPRIL [Concomitant]
     Indication: PRODUCT USED FOR UNKNOWN INDICATION
     Dosage: 4 MG, QD
     Route: 065

REACTIONS (4)
  - Weight decreased [Recovering/Resolving]
  - Change of bowel habit [Recovering/Resolving]
  - Anaemia vitamin B12 deficiency [Recovering/Resolving]
  - Hypoglycaemia [Recovered/Resolved]
